FAERS Safety Report 25859465 (Version 1)
Quarter: 2025Q3

REPORT INFORMATION
  Report Type: Spontaneous
  Country: JP (occurrence: JP)
  Receive Date: 20250929
  Receipt Date: 20250929
  Transmission Date: 20251021
  Serious: Yes (Death, Life-Threatening, Hospitalization, Other)
  Sender: BRISTOL-MYERS SQUIBB COMPANY
  Company Number: JP-BRISTOL-MYERS SQUIBB COMPANY-2025-131725

PATIENT
  Age: 82 Year
  Sex: Male
  Weight: 77.0 kg

DRUGS (7)
  1. VIDAZA [Suspect]
     Active Substance: AZACITIDINE
     Indication: Acute myeloid leukaemia
  2. CYTARABINE [Suspect]
     Active Substance: CYTARABINE
     Indication: Acute myeloid leukaemia
  3. VYXEOS [Suspect]
     Active Substance: CYTARABINE\DAUNORUBICIN
     Indication: Acute myeloid leukaemia
  4. VYXEOS [Suspect]
     Active Substance: CYTARABINE\DAUNORUBICIN
  5. VYXEOS [Suspect]
     Active Substance: CYTARABINE\DAUNORUBICIN
  6. DAUNORUBICIN HYDROCHLORIDE [Concomitant]
     Active Substance: DAUNORUBICIN HYDROCHLORIDE
     Indication: Acute myeloid leukaemia
  7. VENCLEXTA [Concomitant]
     Active Substance: VENETOCLAX
     Indication: Acute myeloid leukaemia

REACTIONS (7)
  - Acute myeloid leukaemia recurrent [Fatal]
  - Disseminated intravascular coagulation [Fatal]
  - Cerebral artery embolism [Fatal]
  - Acute myeloid leukaemia [Fatal]
  - Cerebellar embolism [Fatal]
  - Gastric ulcer [Unknown]
  - Back pain [Unknown]

NARRATIVE: CASE EVENT DATE: 20240827
